FAERS Safety Report 10466210 (Version 1)
Quarter: 2014Q3

REPORT INFORMATION
  Report Type: Spontaneous
  Country: US (occurrence: None)
  Receive Date: 20140919
  Receipt Date: 20140919
  Transmission Date: 20150326
  Serious: Yes (Other)
  Sender: FDA-Public Use
  Company Number: None

PATIENT
  Age: 54 Year
  Sex: Male
  Weight: 83.92 kg

DRUGS (1)
  1. MELOXICAM. [Suspect]
     Active Substance: MELOXICAM
     Indication: BACK PAIN
     Dosage: 15 MG 30 PILLS ONCE DAILY TAKEN BY MOUTH
     Route: 048
     Dates: start: 20140802, end: 20140827

REACTIONS (6)
  - Scab [None]
  - Scar [None]
  - Acne [None]
  - Swelling face [None]
  - Rash [None]
  - Rash erythematous [None]

NARRATIVE: CASE EVENT DATE: 20140802
